FAERS Safety Report 10428386 (Version 2)
Quarter: 2015Q2

REPORT INFORMATION
  Report Type: Spontaneous
  Country: US (occurrence: US)
  Receive Date: 20140903
  Receipt Date: 20150617
  Transmission Date: 20150821
  Serious: Yes (Hospitalization, Other)
  Sender: FDA-Public Use
  Company Number: US-GLAXOSMITHKLINE-A1087263A

PATIENT
  Age: 78 Year
  Sex: Female

DRUGS (23)
  1. ATENOLOL. [Concomitant]
     Active Substance: ATENOLOL
  2. LORATADINE. [Concomitant]
     Active Substance: LORATADINE
  3. BABY ASPIRIN [Concomitant]
     Active Substance: ASPIRIN
  4. GABAPENTIN. [Concomitant]
     Active Substance: GABAPENTIN
  5. PROAIR HFA [Concomitant]
     Active Substance: ALBUTEROL SULFATE
  6. PROBIOTICS [Concomitant]
     Active Substance: PROBIOTICS NOS
  7. CITALOPRAM [Concomitant]
     Active Substance: CITALOPRAM HYDROBROMIDE
  8. METHOTREXATE [Concomitant]
     Active Substance: METHOTREXATE
  9. NORVASC [Concomitant]
     Active Substance: AMLODIPINE BESYLATE
  10. PREDNISONE. [Concomitant]
     Active Substance: PREDNISONE
  11. ADVAIR HFA [Suspect]
     Active Substance: FLUTICASONE PROPIONATE\SALMETEROL XINAFOATE
     Indication: ASTHMA
     Dosage: 2 PUFF(S), BID
     Route: 055
     Dates: start: 2013
  12. LYRICA [Concomitant]
     Active Substance: PREGABALIN
  13. FISH OIL [Concomitant]
     Active Substance: FISH OIL
  14. VITAMIN B12 [Concomitant]
     Active Substance: CYANOCOBALAMIN
  15. FLUTICASONE [Concomitant]
     Active Substance: FLUTICASONE\FLUTICASONE PROPIONATE
  16. PRIMIDONE. [Concomitant]
     Active Substance: PRIMIDONE
  17. FOLIC ACID. [Concomitant]
     Active Substance: FOLIC ACID
  18. SIMVASTATIN. [Concomitant]
     Active Substance: SIMVASTATIN
  19. CALCIUM + VITAMIN D [Concomitant]
     Active Substance: CALCIUM\VITAMIN D
  20. ADVAIR HFA [Suspect]
     Active Substance: FLUTICASONE PROPIONATE\SALMETEROL XINAFOATE
     Indication: ASTHMA
     Dosage: 115/21 MCG
     Route: 055
  21. FUROSEMIDE. [Concomitant]
     Active Substance: FUROSEMIDE
  22. OMEPRAZOLE. [Concomitant]
     Active Substance: OMEPRAZOLE
  23. VITAMIN C [Concomitant]
     Active Substance: ASCORBIC ACID

REACTIONS (5)
  - Staphylococcal infection [Recovered/Resolved]
  - Aortic aneurysm [Recovering/Resolving]
  - Pneumonia [Recovered/Resolved]
  - Bronchitis [Recovering/Resolving]
  - Malaise [Recovered/Resolved]

NARRATIVE: CASE EVENT DATE: 2014
